FAERS Safety Report 14101664 (Version 2)
Quarter: 2017Q4

REPORT INFORMATION
  Report Type: Spontaneous
  Country: US (occurrence: US)
  Receive Date: 20171018
  Receipt Date: 20171109
  Transmission Date: 20180321
  Serious: No
  Sender: FDA-Public Use
  Company Number: US-PFIZER INC-2017448644

PATIENT
  Age: 73 Year
  Sex: Male

DRUGS (1)
  1. LYRICA [Suspect]
     Active Substance: PREGABALIN
     Indication: NEUROPATHY PERIPHERAL
     Dosage: 75 MG, 2X/DAY
     Dates: start: 20170310

REACTIONS (1)
  - Limb discomfort [Not Recovered/Not Resolved]

NARRATIVE: CASE EVENT DATE: 20170310
